FAERS Safety Report 8882990 (Version 1)
Quarter: 2012Q4

REPORT INFORMATION
  Report Type: 
  Country: US (occurrence: US)
  Receive Date: 20121102
  Receipt Date: 20121102
  Transmission Date: 20130627
  Serious: No
  Sender: FDA-Public Use
  Company Number: US-ASTRAZENECA-2011SE73178

PATIENT
  Age: 61 Year
  Sex: Female

DRUGS (6)
  1. CRESTOR [Suspect]
     Indication: BLOOD CHOLESTEROL ABNORMAL
     Route: 048
  2. METFORMIN [Concomitant]
  3. LOSARTAN [Concomitant]
  4. AMLODIPINE [Concomitant]
  5. BABY ASPIRIN [Concomitant]
  6. ZERTAC [Concomitant]

REACTIONS (3)
  - Paraesthesia [Unknown]
  - Paraesthesia [Unknown]
  - Paraesthesia [Unknown]
